FAERS Safety Report 9840173 (Version 1)
Quarter: 2014Q1

REPORT INFORMATION
  Report Type: Spontaneous
  Country: US (occurrence: None)
  Receive Date: 20140121
  Receipt Date: 20140121
  Transmission Date: 20141002
  Serious: Yes (Hospitalization, Other)
  Sender: FDA-Public Use
  Company Number: None

PATIENT
  Age: 44 Year
  Sex: Female

DRUGS (1)
  1. AVONEX [Suspect]
     Indication: MULTIPLE SCLEROSIS
     Route: 030
     Dates: start: 20120801

REACTIONS (7)
  - Abdominal pain [None]
  - Appendicectomy [None]
  - Infection [None]
  - Adverse drug reaction [None]
  - Multiple sclerosis relapse [None]
  - Visual acuity reduced [None]
  - Autoimmune disorder [None]
